FAERS Safety Report 4409931-X (Version None)
Quarter: 2004Q3

REPORT INFORMATION
  Report Type: 
  Country: None (occurrence: None)
  Receive Date: 20040728
  Receipt Date: 20040714
  Transmission Date: 20050211
  Serious: Yes (Other)
  Sender: FDA-Public Use
  Company Number: CA-GLAXOSMITHKLINE-B0339394A

PATIENT
  Age: 90 Year
  Sex: Female

DRUGS (4)
  1. CEFAZOLIN [Suspect]
     Route: 065
  2. ASPIRIN [Concomitant]
     Route: 065
  3. HEPARIN [Concomitant]
  4. PARACETAMOL [Concomitant]

REACTIONS (1)
  - TOXIC EPIDERMAL NECROLYSIS [None]
